FAERS Safety Report 14453419 (Version 1)
Quarter: 2018Q1

REPORT INFORMATION
  Report Type: Spontaneous
  Country: US (occurrence: US)
  Receive Date: 20180127
  Receipt Date: 20180127
  Transmission Date: 20180509
  Serious: No
  Sender: FDA-Public Use
  Company Number: None

PATIENT
  Sex: Male
  Weight: 128.7 kg

DRUGS (1)
  1. FABIOR [Suspect]
     Active Substance: TAZAROTENE
     Indication: ACNE
     Route: 061
     Dates: start: 20171230, end: 20180122

REACTIONS (6)
  - Lip swelling [None]
  - Pain [None]
  - Erythema [None]
  - Swelling face [None]
  - Fear [None]
  - Mouth swelling [None]

NARRATIVE: CASE EVENT DATE: 20180123
